FAERS Safety Report 8083966-0 (Version None)
Quarter: 2012Q1

REPORT INFORMATION
  Report Type: 
  Country: None (occurrence: None)
  Receive Date: 20120128
  Receipt Date: 20110109
  Transmission Date: 20120608
  Serious: No
  Sender: FDA-Public Use
  Company Number: US-ABBOTT-11P-163-0696247-00

PATIENT
  Age: 60 Year
  Sex: Female

DRUGS (3)
  1. UNKNOWN MEDICATION [Concomitant]
     Indication: MIGRAINE
  2. HUMIRA [Suspect]
     Indication: RHEUMATOID ARTHRITIS
     Dates: start: 20101020
  3. VAGIFEM [Concomitant]
     Indication: OESTROGEN REPLACEMENT THERAPY

REACTIONS (1)
  - INJECTION SITE HAEMATOMA [None]
